FAERS Safety Report 23523937 (Version 1)
Quarter: 2024Q1

REPORT INFORMATION
  Report Type: Spontaneous
  Country: US (occurrence: None)
  Receive Date: 20240214
  Receipt Date: 20240214
  Transmission Date: 20240409
  Serious: Yes (Other)
  Sender: FDA-Public Use
  Company Number: 2024A031454

PATIENT
  Sex: Female

DRUGS (2)
  1. SEROQUEL [Suspect]
     Active Substance: QUETIAPINE FUMARATE
     Route: 048
  2. QUETIAPINE [Suspect]
     Active Substance: QUETIAPINE
     Route: 048

REACTIONS (14)
  - Exposure during pregnancy [Unknown]
  - Abortion spontaneous [Unknown]
  - Suicidal ideation [Unknown]
  - Drug abuse [Unknown]
  - Cerebral disorder [Unknown]
  - Insomnia [Unknown]
  - Retrograde amnesia [Unknown]
  - Haemorrhoids [Unknown]
  - Post-traumatic stress disorder [Unknown]
  - Anxiety [Unknown]
  - Feeling abnormal [Unknown]
  - Anorectal disorder [Unknown]
  - Gastrointestinal disorder [Unknown]
  - Menopause [Unknown]
